FAERS Safety Report 4519211-X (Version None)
Quarter: 2004Q4

REPORT INFORMATION
  Report Type: 
  Country: None (occurrence: None)
  Receive Date: 20041201
  Receipt Date: 20041115
  Transmission Date: 20050328
  Serious: Yes (Death)
  Sender: FDA-Public Use
  Company Number: 210758

PATIENT
  Age: 70 Year
  Sex: Female

DRUGS (4)
  1. HERCEPTIN [Suspect]
     Indication: BREAST CANCER METASTATIC
     Dosage: 4MG/KG SINGLE INTRAVENOUS
     Route: 042
     Dates: start: 20041029, end: 20041029
  2. CYCLOPHOSPHAMIDE [Concomitant]
     Dosage: 960 MG INTRAVENOUS
     Route: 042
     Dates: start: 20041029, end: 20041105
  3. METHOTREXATE [Suspect]
     Dosage: 62.5 MG
     Dates: start: 20041029, end: 20041105
  4. FLUOROURACIL [Suspect]
     Dosage: 950 MG
     Dates: start: 20041029, end: 20041105

REACTIONS (3)
  - CARDIAC ARREST [None]
  - LOWER RESPIRATORY TRACT INFECTION [None]
  - NEUTROPENIA [None]
